FAERS Safety Report 24104830 (Version 1)
Quarter: 2024Q3

REPORT INFORMATION
  Report Type: Spontaneous
  Country: US (occurrence: US)
  Receive Date: 20240717
  Receipt Date: 20240717
  Transmission Date: 20241017
  Serious: Yes (Life-Threatening, Hospitalization, Other)
  Sender: HIKMA
  Company Number: US-MLMSERVICE-20240628-PI115846-00149-1

PATIENT
  Age: 5 Decade
  Sex: Male

DRUGS (4)
  1. FLECAINIDE [Suspect]
     Active Substance: FLECAINIDE
     Indication: Atrial fibrillation
     Dosage: 225 MILLIGRAM, Q12H, EXCEEDING THE MAXIMUM DOSING OF 400MG DAILY.
     Route: 065
  2. BRIVARACETAM [Concomitant]
     Active Substance: BRIVARACETAM
     Indication: Product used for unknown indication
     Dosage: UNK
     Route: 065
  3. DILTIAZEM [Concomitant]
     Active Substance: DILTIAZEM
     Indication: Product used for unknown indication
     Dosage: UNK
     Route: 065
  4. VALPROIC ACID [Concomitant]
     Active Substance: VALPROIC ACID
     Indication: Product used for unknown indication
     Dosage: UNK
     Route: 065

REACTIONS (4)
  - Overdose [Recovered/Resolved]
  - Tachyarrhythmia [Recovered/Resolved]
  - Product communication issue [Recovered/Resolved]
  - Acidosis hyperchloraemic [Recovered/Resolved]
